FAERS Safety Report 7494068-6 (Version None)
Quarter: 2011Q2

REPORT INFORMATION
  Report Type: 
  Country: None (occurrence: None)
  Receive Date: 20110520
  Receipt Date: 20110517
  Transmission Date: 20111010
  Serious: Yes (Hospitalization, Other)
  Sender: FDA-Public Use
  Company Number: DE-ABBOTT-10P-062-0692707-00

PATIENT
  Sex: Female

DRUGS (6)
  1. PANTOPRAZOL [Concomitant]
     Indication: PRODUCT USED FOR UNKNOWN INDICATION
  2. HUMIRA [Suspect]
     Dates: start: 20101101, end: 20110415
  3. BUSCOPAN [Concomitant]
     Indication: PRODUCT USED FOR UNKNOWN INDICATION
  4. HUMIRA [Suspect]
     Indication: CROHN'S DISEASE
     Route: 058
     Dates: start: 20101008, end: 20101103
  5. PREDNISOLONE [Concomitant]
     Indication: PRODUCT USED FOR UNKNOWN INDICATION
  6. HUMIRA [Suspect]
     Dates: start: 20110415, end: 20110513

REACTIONS (4)
  - HAEMORRHAGE [None]
  - GASTROINTESTINAL INFLAMMATION [None]
  - SMEAR CERVIX ABNORMAL [None]
  - INTESTINAL STENOSIS [None]
